FAERS Safety Report 9631707 (Version 1)
Quarter: 2013Q4

REPORT INFORMATION
  Report Type: Spontaneous
  Country: US (occurrence: US)
  Receive Date: 20131018
  Receipt Date: 20131018
  Transmission Date: 20140711
  Serious: Yes (Hospitalization)
  Sender: FDA-Public Use
  Company Number: US-ELI_LILLY_AND_COMPANY-US201310003938

PATIENT
  Age: 59 Year
  Sex: Female

DRUGS (1)
  1. HUMALOG LISPRO [Suspect]
     Route: 058

REACTIONS (3)
  - Diabetic ketoacidosis [Unknown]
  - Blood glucose increased [Recovering/Resolving]
  - Malaise [Unknown]
